FAERS Safety Report 5306343-1 (Version None)
Quarter: 2007Q2

REPORT INFORMATION
  Report Type: 
  Country: None (occurrence: None)
  Receive Date: 20070424
  Receipt Date: 20070413
  Transmission Date: 20071010
  Serious: Yes (Death, Hospitalization, Other)
  Sender: FDA-Public Use
  Company Number: US-ELI_LILLY_AND_COMPANY-US200704003117

PATIENT
  Age: 68 Year
  Sex: Female
  Weight: 73 kg

DRUGS (21)
  1. BYETTA [Suspect]
     Indication: DIABETES MELLITUS NON-INSULIN-DEPENDENT
     Dosage: 10 UG, 2/D
     Route: 058
  2. DIOVAN [Concomitant]
     Dosage: 2 UNK, DAILY (1/D)
     Route: 048
  3. SYNTHROID [Concomitant]
     Dosage: 100 UG, DAILY (1/D)
     Route: 048
  4. PROZAC [Concomitant]
     Dosage: 20 MG, 2/D
     Route: 048
  5. SERZONE [Concomitant]
     Dosage: 100 MG, EACH EVENING
     Route: 048
  6. ZYPREXA [Concomitant]
     Dosage: 5 MG, AS NEEDED
     Route: 048
  7. ZYPREXA [Concomitant]
     Dosage: 5 MG, EACH EVENING
     Route: 048
  8. GLUCOPHAGE [Concomitant]
     Dosage: 1000 MG, 2/D
     Route: 048
  9. ASPIRIN [Concomitant]
     Dosage: 81 MG, DAILY (1/D)
     Route: 048
  10. PLETAL [Concomitant]
     Dosage: 100 MG, 2/D
     Route: 048
  11. LIPITOR [Concomitant]
     Dosage: 200MG, DAILY (1/D)
     Route: 048
  12. NPH INSULIN [Concomitant]
     Dosage: UNK, AS NEEDED
  13. REGULAR INSULIN [Concomitant]
  14. DITROPAN [Concomitant]
     Dosage: 20 MG, DAILY (1/D)
     Route: 048
  15. MULTI-VITAMIN [Concomitant]
  16. ORLISTAT [Concomitant]
     Dosage: 120 MG, 3/D
     Route: 048
  17. BENADRYL /00000402/ [Concomitant]
     Dosage: UNK, AS NEEDED
  18. TRAZODONE HCL [Concomitant]
     Dosage: 50 MG, EACH EVENING
     Route: 048
  19. CALCIUM ACETATE [Concomitant]
     Dosage: 2001 MG, 3/D
  20. FLURBIPROFEN [Concomitant]
     Dosage: 100 MG, 2/D
     Route: 048
  21. OMEGA-3 FATTY ACIDS [Concomitant]

REACTIONS (9)
  - CARDIAC FAILURE [None]
  - CEREBROVASCULAR ACCIDENT [None]
  - HYPOTENSION [None]
  - MULTI-ORGAN FAILURE [None]
  - RESPIRATORY DISTRESS [None]
  - RESPIRATORY TRACT INFECTION [None]
  - RHABDOMYOLYSIS [None]
  - SEPSIS [None]
  - WEIGHT DECREASED [None]
